FAERS Safety Report 5670801-0 (Version None)
Quarter: 2008Q1

REPORT INFORMATION
  Report Type: 
  Country: None (occurrence: None)
  Receive Date: 20080318
  Receipt Date: 20080311
  Transmission Date: 20080703
  Serious: Yes (Death, Other)
  Sender: FDA-Public Use
  Company Number: US-JNJFOC-20080204919

PATIENT
  Sex: Male
  Weight: 35.38 kg

DRUGS (3)
  1. RISPERDAL [Suspect]
     Indication: AFFECTIVE DISORDER
     Route: 048
  2. RISPERDAL [Suspect]
     Indication: AGGRESSION
     Route: 048
  3. ZOLOFT [Concomitant]
     Indication: POST-TRAUMATIC STRESS DISORDER

REACTIONS (2)
  - ELECTROCARDIOGRAM QT PROLONGED [None]
  - MYOCARDIAL INFARCTION [None]
